FAERS Safety Report 8094179-0 (Version None)
Quarter: 2012Q1

REPORT INFORMATION
  Report Type: 
  Country: None (occurrence: None)
  Receive Date: 20120130
  Receipt Date: 20120130
  Transmission Date: 20120608
  Serious: No
  Sender: FDA-Public Use
  Company Number: None

PATIENT
  Age: 39 Year
  Sex: Female
  Weight: 74.842 kg

DRUGS (1)
  1. NICORETTE (MINT) [Suspect]
     Indication: SMOKING CESSATION THERAPY
     Dosage: 1 PIECE
     Route: 002

REACTIONS (5)
  - MIGRAINE [None]
  - OEDEMA [None]
  - DEPRESSION [None]
  - PRODUCT FORMULATION ISSUE [None]
  - PALPITATIONS [None]
